FAERS Safety Report 17988352 (Version 1)
Quarter: 2020Q3

REPORT INFORMATION
  Report Type: Spontaneous
  Country: US (occurrence: US)
  Receive Date: 20200706
  Receipt Date: 20200706
  Transmission Date: 20201103
  Serious: Yes (Other)
  Sender: FDA-Public Use
  Company Number: None

PATIENT
  Age: 72 Year
  Sex: Male
  Weight: 86.4 kg

DRUGS (13)
  1. LORAZEPAM. [Concomitant]
     Active Substance: LORAZEPAM
  2. LISINOPRIL. [Concomitant]
     Active Substance: LISINOPRIL
  3. REPATHA [Suspect]
     Active Substance: EVOLOCUMAB
     Indication: BLOOD CALCIUM INCREASED
     Dosage: ?          QUANTITY:4 INJECTION(S);OTHER FREQUENCY:EVERY 2 WEEKS;OTHER ROUTE:INJECTIONS INTO STOMACH TWICE A MONTH?
     Dates: start: 20200506, end: 20200617
  4. XARELTO [Concomitant]
     Active Substance: RIVAROXABAN
  5. SLEEP AID DOXYLAMINE [Concomitant]
  6. FLUOXETINE [Concomitant]
     Active Substance: FLUOXETINE HYDROCHLORIDE
  7. TRAZODONE [Concomitant]
     Active Substance: TRAZODONE HYDROCHLORIDE
  8. OMEPRAZOLE. [Concomitant]
     Active Substance: OMEPRAZOLE
  9. VITAMIN D3 [Concomitant]
     Active Substance: CHOLECALCIFEROL
  10. REPATHA [Suspect]
     Active Substance: EVOLOCUMAB
     Indication: HIGH DENSITY LIPOPROTEIN INCREASED
     Dosage: ?          QUANTITY:4 INJECTION(S);OTHER FREQUENCY:EVERY 2 WEEKS;OTHER ROUTE:INJECTIONS INTO STOMACH TWICE A MONTH?
     Dates: start: 20200506, end: 20200617
  11. LORAZEPAM. [Concomitant]
     Active Substance: LORAZEPAM
  12. GABAPENTIN. [Concomitant]
     Active Substance: GABAPENTIN
  13. DOXYLAMINE [Concomitant]
     Active Substance: DOXYLAMINE

REACTIONS (2)
  - Rash [None]
  - Pruritus [None]

NARRATIVE: CASE EVENT DATE: 20200603
